FAERS Safety Report 13236934 (Version 4)
Quarter: 2017Q1

REPORT INFORMATION
  Report Type: Report from Study
  Country: GB (occurrence: GB)
  Receive Date: 20170215
  Receipt Date: 20170322
  Transmission Date: 20170428
  Serious: Yes (Hospitalization, Other)
  Sender: FDA-Public Use
  Company Number: GB-TAKEDA-2017TUS003091

PATIENT
  Sex: Female

DRUGS (22)
  1. GLYCERYL TRINITRATE [Concomitant]
     Active Substance: NITROGLYCERIN
     Dosage: UNK
  2. PARACETAMOL [Concomitant]
     Active Substance: ACETAMINOPHEN
     Dosage: UNK
  3. HYOSCINE BUTYLBROMIDE [Concomitant]
     Active Substance: BUTYLSCOPOLAMINE
     Dosage: UNK
  4. SALBUTAMOL [Concomitant]
     Active Substance: ALBUTEROL
     Dosage: UNK
  5. VEDOLIZUMAB [Suspect]
     Active Substance: VEDOLIZUMAB
     Indication: PRODUCT USED FOR UNKNOWN INDICATION
     Dosage: UNK
     Route: 042
     Dates: start: 20160617
  6. ATORVASTATIN [Concomitant]
     Active Substance: ATORVASTATIN
     Dosage: UNK
  7. DOMPERIDONE [Concomitant]
     Active Substance: DOMPERIDONE
     Dosage: UNK
  8. TOPIRAMATE. [Concomitant]
     Active Substance: TOPIRAMATE
     Dosage: UNK
  9. COLESTYRAMINE [Concomitant]
     Active Substance: CHOLESTYRAMINE
     Dosage: UNK
  10. WARFARIN [Suspect]
     Active Substance: WARFARIN
     Indication: PRODUCT USED FOR UNKNOWN INDICATION
     Dosage: UNK
     Route: 065
  11. CLOBETASOL PROPIONATE OINTMENT [Concomitant]
     Active Substance: CLOBETASOL PROPIONATE
     Dosage: UNK
  12. SYMBICORT [Concomitant]
     Active Substance: BUDESONIDE\FORMOTEROL FUMARATE DIHYDRATE
     Dosage: UNK
  13. PREDNISOLONE. [Concomitant]
     Active Substance: PREDNISOLONE
     Dosage: UNK
  14. MAGNESIUM GLYCEROPHOSPHATE [Concomitant]
     Active Substance: MAGNESIUM GLYCEROPHOSPHATE
     Dosage: UNK
  15. CYCLIZINE [Concomitant]
     Active Substance: CYCLIZINE
     Dosage: UNK
  16. FUROSEMIDE. [Suspect]
     Active Substance: FUROSEMIDE
     Indication: PRODUCT USED FOR UNKNOWN INDICATION
     Dosage: UNK
     Route: 065
  17. FOLIC ACID. [Concomitant]
     Active Substance: FOLIC ACID
     Dosage: UNK
  18. HYDROXYCARBAMIDE [Concomitant]
     Active Substance: HYDROXYUREA
     Dosage: UNK
  19. ADCAL D3 [Concomitant]
     Active Substance: CALCIUM CARBONATE\CHOLECALCIFEROL
     Dosage: UNK
  20. EPADERM [Concomitant]
     Active Substance: MINERAL OIL\PETROLATUM\WAX, EMULSIFYING
     Dosage: UNK
  21. KETOPROFEN. [Concomitant]
     Active Substance: KETOPROFEN
     Dosage: UNK
  22. CLOPIDOGREL [Concomitant]
     Active Substance: CLOPIDOGREL BISULFATE
     Dosage: UNK

REACTIONS (8)
  - Vaginal haemorrhage [Recovered/Resolved]
  - Vision blurred [Recovered/Resolved]
  - Pleural effusion [Recovered/Resolved]
  - Crohn^s disease [Recovered/Resolved]
  - Hypotension [Recovered/Resolved]
  - Chest pain [Recovered/Resolved]
  - Angina unstable [Recovered/Resolved]
  - Hypokalaemia [Recovered/Resolved]

NARRATIVE: CASE EVENT DATE: 20160805
